FAERS Safety Report 15433534 (Version 1)
Quarter: 2018Q3

REPORT INFORMATION
  Report Type: Spontaneous
  Country: US (occurrence: US)
  Receive Date: 20180921
  Receipt Date: 20180921
  Transmission Date: 20181010
  Serious: No
  Sender: FDA-Public Use
  Company Number: None

PATIENT
  Age: 51 Year
  Sex: Female

DRUGS (1)
  1. GLATIRAMER [Suspect]
     Active Substance: GLATIRAMER
     Route: 058
     Dates: start: 201801

REACTIONS (4)
  - Injection site erythema [None]
  - Injection site swelling [None]
  - Injection site induration [None]
  - Product substitution issue [None]
